FAERS Safety Report 9068947 (Version 1)
Quarter: 2013Q1

REPORT INFORMATION
  Report Type: Spontaneous
  Country: US (occurrence: None)
  Receive Date: 20130213
  Receipt Date: 20130213
  Transmission Date: 20140127
  Serious: Yes (Life-Threatening)
  Sender: FDA-Public Use
  Company Number: None

PATIENT
  Age: 66 Year
  Sex: Male
  Weight: 69.2 kg

DRUGS (2)
  1. NAFCILLIN [Suspect]
     Indication: STAPHYLOCOCCAL BACTERAEMIA
     Route: 042
     Dates: start: 20121229, end: 20121229
  2. NAFCILLIN [Suspect]
     Indication: ENDOCARDITIS STAPHYLOCOCCAL
     Route: 042
     Dates: start: 20121229, end: 20121229

REACTIONS (4)
  - Pyrexia [None]
  - Palpitations [None]
  - Torsade de pointes [None]
  - Cardio-respiratory arrest [None]
